FAERS Safety Report 8074032-9 (Version None)
Quarter: 2012Q1

REPORT INFORMATION
  Report Type: 
  Country: None (occurrence: None)
  Receive Date: 20120119
  Receipt Date: 20120110
  Transmission Date: 20120608
  Serious: Yes (Hospitalization)
  Sender: FDA-Public Use
  Company Number: 1000027145

PATIENT
  Age: 85 Year
  Sex: Female

DRUGS (9)
  1. ATORVASTATIN CALCIUM [Suspect]
     Dosage: 10 MG (10 MG, 1 IN 1 D), ORAL
     Route: 048
     Dates: end: 20111128
  2. NEBIVOLOL HCL [Suspect]
     Dosage: 2.5 MG (2.5 MG, 1 IN 1 D), ORAL
     Route: 048
     Dates: end: 20111128
  3. RAMIPRIL [Suspect]
     Dosage: 5 MG (5 MG, 1 IN 1 D), ORAL
     Route: 048
     Dates: end: 20111128
  4. FUROSEMIDE [Concomitant]
  5. AMLODIPINE [Concomitant]
  6. SEROPLEX (ESCITGALOPRAM OXALATE) [Concomitant]
  7. COZAAR [Suspect]
     Dosage: 100 MG (100 MG, 1 IN 1 D), ORAL
     Route: 048
     Dates: end: 20111128
  8. COUMADIN [Concomitant]
  9. XALATAN [Concomitant]

REACTIONS (4)
  - INTERSTITIAL LUNG DISEASE [None]
  - ORTHOPNOEA [None]
  - ALVEOLITIS ALLERGIC [None]
  - PULMONARY FIBROSIS [None]
